FAERS Safety Report 15561722 (Version 1)
Quarter: 2018Q4

REPORT INFORMATION
  Report Type: Spontaneous
  Country: US (occurrence: US)
  Receive Date: 20181029
  Receipt Date: 20181029
  Transmission Date: 20190205
  Serious: No
  Sender: FDA-Public Use
  Company Number: US-MYLANLABS-2018M1078281

PATIENT
  Age: 23 Year
  Sex: Female

DRUGS (1)
  1. CYSTAGON [Suspect]
     Active Substance: CYSTEAMINE BITARTRATE
     Indication: CYSTINOSIS
     Dosage: 750 MG, QID
     Route: 048
     Dates: start: 20180724

REACTIONS (1)
  - Skin odour abnormal [Unknown]

NARRATIVE: CASE EVENT DATE: 201807
